FAERS Safety Report 17670428 (Version 1)
Quarter: 2020Q2

REPORT INFORMATION
  Report Type: Spontaneous
  Country: FR (occurrence: FR)
  Receive Date: 20200415
  Receipt Date: 20200415
  Transmission Date: 20200713
  Serious: Yes (Hospitalization)
  Sender: FDA-Public Use
  Company Number: FR-ACCORD-178669

PATIENT
  Age: 69 Year
  Sex: Male
  Weight: 106 kg

DRUGS (16)
  1. RHINOMAXIL [Suspect]
     Active Substance: BECLOMETHASONE DIPROPIONATE
     Indication: RHINITIS ALLERGIC
     Dosage: 100 MICROGRAMS / DOSE, SUSPENSION FOR NASAL SPRAY
     Route: 045
     Dates: start: 20200229, end: 20200304
  2. LANTUS [Concomitant]
     Active Substance: INSULIN GLARGINE
  3. AMLODIPINE [Suspect]
     Active Substance: AMLODIPINE BESYLATE
     Indication: HYPERTENSION
     Route: 048
     Dates: start: 20200204, end: 20200309
  4. ESOMEPRAZOLE/ESOMEPRAZOLE MAGNESIUM/ESOMEPRAZOLE SODIUM [Suspect]
     Active Substance: ESOMEPRAZOLE
     Indication: GASTROOESOPHAGEAL REFLUX PROPHYLAXIS
     Route: 048
     Dates: start: 20200229, end: 20200304
  5. KARDEGIC [Concomitant]
     Active Substance: ASPIRIN DL-LYSINE
     Dosage: 75 MG,POWDER FOR ORAL SOLUTION IN SACHET-DOSE
  6. AERIUS (DESLORATADINE) [Suspect]
     Active Substance: DESLORATADINE
     Indication: ANTIALLERGIC THERAPY
     Route: 048
     Dates: start: 20200229, end: 20200304
  7. NOVATREX NOS [Concomitant]
     Active Substance: AZITHROMYCIN OR METHOTREXATE SODIUM
     Dosage: 2.5 MG
  8. SPECIAFOLDINE [Concomitant]
     Active Substance: FOLIC ACID
     Dosage: 5 MG,
  9. ISOPTINE [Concomitant]
     Active Substance: VERAPAMIL HYDROCHLORIDE
  10. ZITHROMAX [Suspect]
     Active Substance: AZITHROMYCIN DIHYDRATE
     Indication: INFECTION
     Route: 048
     Dates: start: 20200229, end: 20200304
  11. EUCREAS [Concomitant]
     Active Substance: METFORMIN HYDROCHLORIDE\VILDAGLIPTIN
     Dosage: 50 MG / 1000 MG
  12. TRANSIPEG [Concomitant]
  13. GLICLAZIDE [Concomitant]
     Active Substance: GLICLAZIDE
  14. INEGY [Concomitant]
     Active Substance: EZETIMIBE\SIMVASTATIN
     Dosage: 10 MG / 40 MG
  15. NOVOPULMON NOVOLIZER [Suspect]
     Active Substance: BUDESONIDE
     Indication: ASTHMA
     Dosage: 200 MICROGRAMS / DOSE, POWDER FOR INHALATION
     Route: 055
     Dates: start: 20200229, end: 20200304
  16. KARDEGIC [Concomitant]
     Active Substance: ASPIRIN DL-LYSINE
     Dosage: 75 MG,POWDER FOR ORAL SOLUTION IN SACHET-DOSE

REACTIONS (2)
  - Generalised oedema [Recovered/Resolved]
  - Weight increased [Recovered/Resolved]

NARRATIVE: CASE EVENT DATE: 20200301
